FAERS Safety Report 6650340-0 (Version None)
Quarter: 2010Q1

REPORT INFORMATION
  Report Type: 
  Country: None (occurrence: None)
  Receive Date: 20100322
  Receipt Date: 20100310
  Transmission Date: 20100710
  Serious: Yes (Hospitalization)
  Sender: FDA-Public Use
  Company Number: DSM-2010-00420

PATIENT
  Age: 73 Year
  Sex: Female

DRUGS (7)
  1. OLMESARTAN MEDOXOMIL [Suspect]
     Indication: DRUG USE FOR UNKNOWN INDICATION
     Dosage: 20 MG, ORAL
     Route: 048
     Dates: start: 20050101, end: 20091121
  2. LOROXYL (AMITRIPTYLINE HYDROCHLORIDE) [Suspect]
     Indication: DRUG USE FOR UNKNOWN INDICATION
     Dosage: 2 DROPS,ORAL
     Route: 048
     Dates: start: 20050101
  3. RIVOTRIL     (CLONAZEPAM) [Suspect]
     Indication: DRUG USE FOR UNKNOWN INDICATION
     Dosage: 2 MG,ORAL
     Route: 048
     Dates: start: 20050101
  4. ZOPICLONE          (ZOPICLONE) [Suspect]
     Indication: DRUG USE FOR UNKNOWN INDICATION
     Dosage: 7.5 MG,ORAL
     Route: 048
     Dates: start: 20050101, end: 20091121
  5. LORAZEPAM              (LORAZAPEM) [Suspect]
     Indication: DRUG USE FOR UNKNOWN INDICATION
     Dosage: ORAL
     Route: 048
     Dates: start: 20050101
  6. CITALOPRAM HYDROBROMIDE [Suspect]
     Indication: DRUG USE FOR UNKNOWN INDICATION
     Dosage: 20 MG,ORAL
     Route: 048
     Dates: start: 20050101
  7. POLYETHYLENE GLYCOL [Concomitant]

REACTIONS (6)
  - DISORIENTATION [None]
  - FALL [None]
  - HALLUCINATION, VISUAL [None]
  - INCOHERENT [None]
  - MEMORY IMPAIRMENT [None]
  - MUSCULAR WEAKNESS [None]
